FAERS Safety Report 8068555-6 (Version None)
Quarter: 2012Q1

REPORT INFORMATION
  Report Type: 
  Country: None (occurrence: None)
  Receive Date: 20120124
  Receipt Date: 20111111
  Transmission Date: 20120608
  Serious: No
  Sender: FDA-Public Use
  Company Number: US-AMGEN-USASP2011059647

PATIENT
  Sex: Female

DRUGS (4)
  1. PROLIA [Suspect]
     Indication: OSTEOPOROSIS POSTMENOPAUSAL
     Dates: start: 20110428
  2. IBUPROFEN [Concomitant]
  3. HYZAAR [Concomitant]
  4. ZOCOR [Concomitant]

REACTIONS (1)
  - BACK PAIN [None]
